FAERS Safety Report 8587827-X (Version None)
Quarter: 2012Q3

REPORT INFORMATION
  Report Type: 
  Country: None (occurrence: None)
  Receive Date: 20120813
  Receipt Date: 20120801
  Transmission Date: 20120928
  Serious: No
  Sender: FDA-Public Use
  Company Number: US-BIOGENIDEC-2012BI018000

PATIENT
  Age: 46 Year
  Sex: Female

DRUGS (2)
  1. TYSABRI [Suspect]
     Indication: MULTIPLE SCLEROSIS
     Route: 042
     Dates: start: 20120507, end: 20120507
  2. LISINOPRIL [Concomitant]
     Indication: BLOOD PRESSURE

REACTIONS (10)
  - RESPIRATORY RATE INCREASED [None]
  - PAINFUL RESPIRATION [None]
  - DYSPNOEA [None]
  - OROPHARYNGEAL PAIN [None]
  - HYPOAESTHESIA [None]
  - MUSCLE SPASMS [None]
  - EPISTAXIS [None]
  - WHEEZING [None]
  - HEADACHE [None]
  - NASAL CONGESTION [None]
